FAERS Safety Report 6986259-5 (Version None)
Quarter: 2010Q3

REPORT INFORMATION
  Report Type: 
  Country: None (occurrence: None)
  Receive Date: 20100915
  Receipt Date: 20090608
  Transmission Date: 20110219
  Serious: No
  Sender: FDA-Public Use
  Company Number: US-WYE-H09666109

PATIENT
  Sex: Female
  Weight: 68.1 kg

DRUGS (6)
  1. PRISTIQ [Suspect]
     Indication: POST-TRAUMATIC STRESS DISORDER
     Route: 048
     Dates: start: 20090518, end: 20090601
  2. PRISTIQ [Suspect]
     Indication: DEPRESSION
     Dosage: ^SKIPPED A DOSE^
     Route: 048
     Dates: start: 20090601
  3. METFORMIN [Concomitant]
  4. LISINOPRIL [Concomitant]
  5. NOVOLOG [Concomitant]
  6. XANAX [Concomitant]

REACTIONS (3)
  - BLISTER [None]
  - RASH MACULO-PAPULAR [None]
  - VISUAL IMPAIRMENT [None]
